FAERS Safety Report 6322664-8 (Version None)
Quarter: 2009Q3

REPORT INFORMATION
  Report Type: 
  Country: None (occurrence: None)
  Receive Date: 20090824
  Receipt Date: 20090326
  Transmission Date: 20100115
  Serious: No
  Sender: FDA-Public Use
  Company Number: US-ABBOTT-09P-163-0558262-00

PATIENT
  Sex: Female
  Weight: 85.806 kg

DRUGS (8)
  1. NIASPAN [Suspect]
     Indication: BLOOD CHOLESTEROL
     Dosage: DAILY AT BEDTIME
     Dates: start: 20090204, end: 20090322
  2. NIASPAN [Suspect]
     Indication: BLOOD TRIGLYCERIDES INCREASED
  3. PRAVACHOL [Concomitant]
     Indication: DRUG USE FOR UNKNOWN INDICATION
  4. PLAVIX [Concomitant]
     Indication: DRUG USE FOR UNKNOWN INDICATION
  5. LOVAZA [Concomitant]
     Indication: DRUG USE FOR UNKNOWN INDICATION
  6. COZAAR [Concomitant]
     Indication: DRUG USE FOR UNKNOWN INDICATION
  7. REGLAN [Concomitant]
     Indication: DRUG USE FOR UNKNOWN INDICATION
  8. VERAPAMIL [Concomitant]
     Indication: DRUG USE FOR UNKNOWN INDICATION

REACTIONS (9)
  - ABDOMINAL DISTENSION [None]
  - CHAPPED LIPS [None]
  - CHEILITIS [None]
  - DYSPNOEA [None]
  - FLUID RETENTION [None]
  - HEPATIC ENZYME INCREASED [None]
  - OEDEMA PERIPHERAL [None]
  - PRURITUS [None]
  - SWELLING FACE [None]
